FAERS Safety Report 25070241 (Version 2)
Quarter: 2025Q2

REPORT INFORMATION
  Report Type: Spontaneous
  Country: US (occurrence: US)
  Receive Date: 20250312
  Receipt Date: 20250407
  Transmission Date: 20250716
  Serious: No
  Sender: INCYTE
  Company Number: US-EVENT-001948

PATIENT
  Age: 61 Year

DRUGS (1)
  1. OPZELURA [Suspect]
     Active Substance: RUXOLITINIB PHOSPHATE
     Indication: Eczema
     Route: 065

REACTIONS (3)
  - Product dose omission issue [Unknown]
  - Product container issue [Unknown]
  - Expired product administered [Unknown]
